FAERS Safety Report 14968003 (Version 2)
Quarter: 2018Q2

REPORT INFORMATION
  Report Type: Spontaneous
  Country: SA (occurrence: SA)
  Receive Date: 20180604
  Receipt Date: 20180607
  Transmission Date: 20180711
  Serious: Yes (Life-Threatening)
  Sender: FDA-Public Use
  Company Number: SA-ROCHE-2132927

PATIENT
  Age: 50 Year
  Sex: Male
  Weight: 70 kg

DRUGS (1)
  1. ACTILYSE [Suspect]
     Active Substance: ALTEPLASE
     Indication: CEREBROVASCULAR ACCIDENT
     Dosage: TOTAL DOSE OF 60 MG
     Route: 042

REACTIONS (3)
  - Aortic dissection [Unknown]
  - Blood pressure decreased [Unknown]
  - Loss of consciousness [Unknown]
